FAERS Safety Report 15605104 (Version 2)
Quarter: 2018Q4

REPORT INFORMATION
  Report Type: Spontaneous
  Country: DE (occurrence: DE)
  Receive Date: 20181112
  Receipt Date: 20181116
  Transmission Date: 20190205
  Serious: Yes (Congenital Anomaly)
  Sender: FDA-Public Use
  Company Number: DE-TEVA-2018-DE-973441

PATIENT
  Age: 0 Year
  Sex: Female
  Weight: 3.41 kg

DRUGS (2)
  1. FEMIBION [Concomitant]
     Active Substance: VITAMINS
     Indication: PROPHYLAXIS OF NEURAL TUBE DEFECT
     Route: 064
     Dates: start: 20170314, end: 20171108
  2. VENLAFAXINE [Suspect]
     Active Substance: VENLAFAXINE HYDROCHLORIDE
     Indication: PERINATAL DEPRESSION
     Dosage: 150 MILLIGRAM DAILY;
     Route: 064
     Dates: start: 20170214, end: 20171108

REACTIONS (2)
  - Foetal exposure during pregnancy [Unknown]
  - Infantile haemangioma [Unknown]
